FAERS Safety Report 20595140 (Version 1)
Quarter: 2022Q1

REPORT INFORMATION
  Report Type: Spontaneous
  Country: FR (occurrence: FR)
  Receive Date: 20220315
  Receipt Date: 20220315
  Transmission Date: 20220424
  Serious: Yes (Death, Other)
  Sender: FDA-Public Use
  Company Number: None

PATIENT
  Age: 41 Year
  Sex: Male

DRUGS (7)
  1. SERETIDE [Suspect]
     Active Substance: FLUTICASONE PROPIONATE\SALMETEROL XINAFOATE
     Indication: Chronic obstructive pulmonary disease
     Dosage: 2 DF, QD (1 INH MORNING AND EVENING)
     Route: 055
     Dates: start: 20220131, end: 20220213
  2. VALPROMIDE [Suspect]
     Active Substance: VALPROMIDE
     Indication: Mania
     Dosage: 2 DF, QD (1 MORNING AND EVENING)
     Route: 048
     Dates: start: 20220202, end: 20220213
  3. TRIMEPRAZINE [Suspect]
     Active Substance: TRIMEPRAZINE
     Indication: Schizophrenia
     Dosage: 40 DF, QD (40 DROPS AT BEDTIME)
     Route: 048
     Dates: start: 20220130, end: 20220213
  4. VALIUM [Suspect]
     Active Substance: DIAZEPAM
     Indication: Schizophrenia
     Dosage: 150 DF, QD (30 DROPS MORNING, NOON, SNACK, EVENING AND BEDTIME)
     Route: 048
     Dates: start: 20220129, end: 20220213
  5. OLANZAPINE [Suspect]
     Active Substance: OLANZAPINE
     Indication: Schizophrenia
     Dosage: 1 DF, QD (1 IN THE EVENING)
     Route: 048
     Dates: start: 20220130, end: 20220213
  6. TERALITHE [Suspect]
     Active Substance: LITHIUM CARBONATE
     Indication: Schizophrenia
     Dosage: 1 DF, QD (1 IN THE EVENING)
     Route: 048
     Dates: start: 20220209, end: 20220213
  7. TROPATEPINE HYDROCHLORIDE [Suspect]
     Active Substance: TROPATEPINE HYDROCHLORIDE
     Indication: Tremor
     Dosage: 2 DF, QD (1 NOON AND EVENING)
     Route: 048
     Dates: start: 20220207, end: 20220213

REACTIONS (1)
  - Death [Fatal]

NARRATIVE: CASE EVENT DATE: 20220214
